FAERS Safety Report 25758541 (Version 2)
Quarter: 2025Q3

REPORT INFORMATION
  Report Type: Spontaneous
  Country: JP (occurrence: JP)
  Receive Date: 20250904
  Receipt Date: 20250923
  Transmission Date: 20251021
  Serious: Yes (Hospitalization)
  Sender: AMGEN
  Company Number: JP-DSJP-DS-2025-161658-

PATIENT
  Age: 100 Year
  Sex: Female

DRUGS (9)
  1. DENOSUMAB [Suspect]
     Active Substance: DENOSUMAB
     Indication: Osteoporosis
     Dosage: UNK UNK, ONCE EVERY 6 MO
     Route: 058
     Dates: end: 20250221
  2. DENOSUMAB [Suspect]
     Active Substance: DENOSUMAB
     Route: 058
     Dates: start: 20250821, end: 20250821
  3. DENOSUMAB [Suspect]
     Active Substance: DENOSUMAB
     Dosage: 0.5 ML, ONCE EVERY 6 MO
     Route: 058
     Dates: start: 20250825, end: 20250825
  4. NORVASC [Concomitant]
     Active Substance: AMLODIPINE BESYLATE
     Indication: Hypertension
     Dosage: 5 MG, QD
     Route: 065
  5. SODIUM FERROUS CITRATE [Concomitant]
     Active Substance: SODIUM FERROUS CITRATE
     Indication: Iron deficiency anaemia
     Route: 065
  6. SEROQUEL [Concomitant]
     Active Substance: QUETIAPINE FUMARATE
     Indication: Schizophrenia
     Route: 065
  7. HERBALS [Concomitant]
     Active Substance: HERBALS
     Indication: Restlessness
     Dosage: UNK, TID
     Route: 065
  8. HERBALS [Concomitant]
     Active Substance: HERBALS
     Indication: Insomnia
     Route: 065
  9. BELSOMRA [Concomitant]
     Active Substance: SUVOREXANT
     Indication: Insomnia
     Dosage: 15 MG, QD
     Route: 065

REACTIONS (3)
  - Femur fracture [Unknown]
  - Fall [Unknown]
  - Duplicate therapy error [Unknown]

NARRATIVE: CASE EVENT DATE: 20250223
